FAERS Safety Report 18704106 (Version 3)
Quarter: 2021Q1

REPORT INFORMATION
  Report Type: Report from Study
  Country: JP (occurrence: JP)
  Receive Date: 20210105
  Receipt Date: 20210122
  Transmission Date: 20210419
  Serious: Yes (Hospitalization)
  Sender: FDA-Public Use
  Company Number: JP-PFIZER INC-2020518991

PATIENT
  Age: 66 Year
  Sex: Female
  Weight: 57.3 kg

DRUGS (9)
  1. MINOCYCLINE HYDROCHLORIDE. [Concomitant]
     Active Substance: MINOCYCLINE HYDROCHLORIDE
     Indication: RASH
     Dosage: 100 MG, EVERYDAY
     Route: 048
     Dates: start: 20201203, end: 20201227
  2. MEKTOVI [Suspect]
     Active Substance: BINIMETINIB
     Indication: COLON CANCER
     Dosage: 45 MG, Q12H
     Route: 048
     Dates: end: 20201227
  3. BRAFTOVI [Suspect]
     Active Substance: ENCORAFENIB
     Indication: COLON CANCER
     Dosage: 300 MG, EVERYDAY
     Route: 048
     Dates: end: 20201227
  4. CETUXIMAB. [Concomitant]
     Active Substance: CETUXIMAB
     Indication: COLON CANCER
     Dosage: 410 MG, QW
     Route: 065
     Dates: start: 20201112, end: 20201224
  5. EPINASTINE HYDROCHLORIDE. [Concomitant]
     Active Substance: EPINASTINE HYDROCHLORIDE
     Indication: RASH
     Dosage: 20 MG, EVERYDAY
     Route: 048
     Dates: start: 20201210, end: 20201224
  6. AZUNOL [GUAIAZULENE] [Concomitant]
     Active Substance: GUAIAZULENE
     Indication: RASH
     Dosage: UNK, PRN
     Route: 061
     Dates: start: 20201203
  7. LOCOID [Concomitant]
     Active Substance: HYDROCORTISONE BUTYRATE
     Indication: RASH
     Dosage: UNK UNK, PRN
     Route: 061
     Dates: start: 20201124
  8. BETAMETHASONE. [Concomitant]
     Active Substance: BETAMETHASONE
     Indication: RASH
     Dosage: UNK, PRN
     Route: 061
     Dates: start: 20201124
  9. HEPARINOID [Concomitant]
     Active Substance: CHONDROITIN SULFATE (BOVINE)
     Indication: PROPHYLAXIS
     Dosage: UNK, PRN
     Route: 061
     Dates: start: 20201112

REACTIONS (1)
  - Decreased appetite [Recovered/Resolved]

NARRATIVE: CASE EVENT DATE: 20201225
